FAERS Safety Report 6874660-X (Version None)
Quarter: 2010Q3

REPORT INFORMATION
  Report Type: 
  Country: None (occurrence: None)
  Receive Date: 20100722
  Receipt Date: 20100713
  Transmission Date: 20110219
  Serious: Yes (Hospitalization)
  Sender: FDA-Public Use
  Company Number: PI-04892

PATIENT
  Age: 57 Year
  Sex: Female

DRUGS (2)
  1. CHLORAPREP WITH TINT [Suspect]
     Indication: PREOPERATIVE CARE
     Dosage: 26 ML, ONCE, TOPICAL
     Route: 061
     Dates: start: 20100701
  2. CHLORAPREP WITH TINT [Suspect]
     Indication: PREOPERATIVE CARE
     Dosage: 10.5 ML, ONCE, TOPICAL
     Route: 061
     Dates: start: 20100701

REACTIONS (1)
  - BLISTER [None]
